FAERS Safety Report 21944650 (Version 1)
Quarter: 2023Q1

REPORT INFORMATION
  Report Type: Spontaneous
  Country: US (occurrence: None)
  Receive Date: 20230201
  Receipt Date: 20230201
  Transmission Date: 20230417
  Serious: Yes (Other)
  Sender: FDA-Public Use
  Company Number: None

PATIENT
  Age: 39 Year
  Sex: Female
  Weight: 56.25 kg

DRUGS (4)
  1. HERBALS\TETRAHYDROCANNABINOL MIXED [Suspect]
     Active Substance: HERBALS\TETRAHYDROCANNABINOL MIXED
     Indication: Anxiety
     Dosage: OTHER QUANTITY : 1 TABLET(S);?FREQUENCY : AS NEEDED;?
     Route: 048
     Dates: start: 20230127, end: 20230127
  2. VITAMINS [Concomitant]
     Active Substance: VITAMINS
  3. IRON [Concomitant]
     Active Substance: IRON
  4. VITAMIN D [Concomitant]
     Active Substance: VITAMIN D NOS

REACTIONS (16)
  - Wrong product administered [None]
  - Dizziness [None]
  - Disorientation [None]
  - Tremor [None]
  - Palpitations [None]
  - Dyspnoea [None]
  - Gait inability [None]
  - Limb discomfort [None]
  - Photophobia [None]
  - Speech disorder [None]
  - Mental impairment [None]
  - Muscle twitching [None]
  - Blood glucose increased [None]
  - Fatigue [None]
  - Feeling abnormal [None]
  - Nausea [None]

NARRATIVE: CASE EVENT DATE: 20230127
